FAERS Safety Report 11334915 (Version 2)
Quarter: 2015Q3

REPORT INFORMATION
  Report Type: Spontaneous
  Country: US (occurrence: None)
  Receive Date: 20150731
  Receipt Date: 20150903
  Transmission Date: 20151125
  Serious: Yes (Death, Life-Threatening, Hospitalization)
  Sender: FDA-Public Use
  Company Number: US-DRAXIINC-000463

PATIENT
  Age: 60 Year
  Sex: Male

DRUGS (13)
  1. SALMETEROL [Concomitant]
     Active Substance: SALMETEROL
  2. FLUTICASONE (FLUTICASONE, SALMETEROL) [Concomitant]
  3. ASPIRIN. [Concomitant]
     Active Substance: ASPIRIN
  4. ATORVASTATIN [Concomitant]
     Active Substance: ATORVASTATIN
  5. LEVOTHYROXINE. [Concomitant]
     Active Substance: LEVOTHYROXINE
  6. DRAXIMAGE DTPA (INN: DIETHYLENE TRIAMINE PENTAACETIC ACID [Suspect]
     Active Substance: PENTETIC ACID
     Indication: VENTILATION/PERFUSION SCAN
     Dosage: 1 X 38 MCI/ 1 TOTAL RESPIRATORY
     Route: 055
     Dates: start: 20150711, end: 20150711
  7. EPLERENONE. [Concomitant]
     Active Substance: EPLERENONE
  8. FENOFIBRATE. [Concomitant]
     Active Substance: FENOFIBRATE
  9. ALBUTEROL. [Concomitant]
     Active Substance: ALBUTEROL
  10. SENNA [Concomitant]
     Active Substance: SENNA LEAF\SENNOSIDES\SENNOSIDES A AND B
  11. NEBIVOLOL. [Concomitant]
     Active Substance: NEBIVOLOL
  12. HCTZ (HYDROCHLOROTHIAZIDE) [Concomitant]
     Active Substance: HYDROCHLOROTHIAZIDE
  13. CLONIDINE. [Concomitant]
     Active Substance: CLONIDINE

REACTIONS (3)
  - Anaphylactic shock [None]
  - Respiratory failure [None]
  - Pulmonary embolism [None]

NARRATIVE: CASE EVENT DATE: 20150711
